FAERS Safety Report 8469440-8 (Version None)
Quarter: 2012Q2

REPORT INFORMATION
  Report Type: 
  Country: None (occurrence: None)
  Receive Date: 20120626
  Receipt Date: 20120619
  Transmission Date: 20120825
  Serious: Yes (Other)
  Sender: FDA-Public Use
  Company Number: US-FRI-1000031482

PATIENT
  Age: 80 Year
  Sex: Male

DRUGS (9)
  1. FLOMAX [Concomitant]
     Indication: BENIGN PROSTATIC HYPERPLASIA
  2. METFORMIN HCL [Concomitant]
     Indication: DIABETES MELLITUS
  3. LEVOXYL [Concomitant]
     Indication: HYPOTHYROIDISM
  4. LIPITOR [Concomitant]
     Indication: BLOOD CHOLESTEROL INCREASED
  5. METOPROLOL TARTRATE [Concomitant]
     Indication: HYPERTENSION
  6. DALIRESP [Suspect]
     Indication: CHRONIC OBSTRUCTIVE PULMONARY DISEASE
     Dosage: 500 MCG
     Route: 048
     Dates: start: 20120604
  7. PREVACID [Concomitant]
     Indication: GASTROOESOPHAGEAL REFLUX DISEASE
  8. AVAPRO [Concomitant]
     Indication: HYPERTENSION
  9. SYMBICORT [Concomitant]
     Indication: CHRONIC OBSTRUCTIVE PULMONARY DISEASE

REACTIONS (2)
  - TACHYCARDIA [None]
  - ATRIAL FIBRILLATION [None]
